FAERS Safety Report 21868799 (Version 2)
Quarter: 2024Q2

REPORT INFORMATION
  Report Type: Report from Study
  Country: TH (occurrence: TH)
  Receive Date: 20230117
  Receipt Date: 20240520
  Transmission Date: 20240716
  Serious: Yes (Other)
  Sender: FDA-Public Use
  Company Number: TH-002147023-NVSC2023TH005868

PATIENT
  Age: 51 Year
  Sex: Female

DRUGS (178)
  1. KISQALI [Suspect]
     Active Substance: RIBOCICLIB
     Indication: Breast cancer metastatic
     Dosage: 600 MG, QD (AFTER MEAL 200 MG OF 3 TABLETS)
     Route: 048
     Dates: start: 20211113
  2. KISQALI [Suspect]
     Active Substance: RIBOCICLIB
     Indication: Adenocarcinoma
     Dosage: 400 MG, QD (AFTER MEAL 200 MG OF 2 TABLETS)
     Route: 048
     Dates: start: 20211218, end: 20230110
  3. KISQALI [Suspect]
     Active Substance: RIBOCICLIB
     Indication: Spinal compression fracture
     Dosage: 200 MG
     Route: 048
  4. LETROZOLE [Suspect]
     Active Substance: LETROZOLE
     Indication: Adenocarcinoma
     Dosage: 2.5 MG, QD (1 TABLET)
     Route: 065
     Dates: start: 20211113
  5. LETROZOLE [Suspect]
     Active Substance: LETROZOLE
     Indication: Spinal compression fracture
     Dosage: 2.5 MG, QD (1 TABLET)
     Route: 065
     Dates: start: 20211208
  6. LETROZOLE [Suspect]
     Active Substance: LETROZOLE
     Dosage: 2.5 MG, QD (1 TABLET)
     Route: 065
     Dates: start: 20221218
  7. LETROZOLE [Suspect]
     Active Substance: LETROZOLE
     Dosage: 2.5 MG, QD (1 TABLET)
     Route: 065
     Dates: start: 20220108
  8. LETROZOLE [Suspect]
     Active Substance: LETROZOLE
     Dosage: 2.5 MG, QD (1 TABLET)
     Route: 065
     Dates: start: 20220205
  9. LETROZOLE [Suspect]
     Active Substance: LETROZOLE
     Dosage: 2.5 MG, QD (1 TABLET)
     Route: 065
     Dates: start: 20220303
  10. LETROZOLE [Suspect]
     Active Substance: LETROZOLE
     Dosage: 2.5 MG, QD (1 TABLET)
     Route: 065
     Dates: start: 20220402
  11. LETROZOLE [Suspect]
     Active Substance: LETROZOLE
     Dosage: 2.5 MG, QD (1 TABLET)
     Route: 065
     Dates: start: 20220528
  12. LETROZOLE [Suspect]
     Active Substance: LETROZOLE
     Dosage: 2.5 MG, QD (1 TABLET)
     Route: 065
     Dates: start: 20220625
  13. LETROZOLE [Suspect]
     Active Substance: LETROZOLE
     Dosage: 2.5 MG, QD (1 TABLET)
     Route: 065
     Dates: start: 20220723
  14. LETROZOLE [Suspect]
     Active Substance: LETROZOLE
     Dosage: 2.5 MG, QD (1 TABLET)
     Route: 065
     Dates: start: 20220822
  15. LETROZOLE [Suspect]
     Active Substance: LETROZOLE
     Dosage: 2.5 MG, QD (1 TABLET)
     Route: 065
     Dates: start: 20220919
  16. LETROZOLE [Suspect]
     Active Substance: LETROZOLE
     Dosage: 2.5 MG, QD (1 TABLET)
     Route: 065
     Dates: start: 20221029
  17. LETROZOLE [Suspect]
     Active Substance: LETROZOLE
     Dosage: 2.5 MG, QD (1 TABLET)
     Route: 065
     Dates: start: 20221203
  18. LETROZOLE [Suspect]
     Active Substance: LETROZOLE
     Dosage: 2.5 MG, QD (1 TABLET)
     Route: 065
     Dates: start: 20230110
  19. ZOLEDRONIC ACID [Concomitant]
     Active Substance: ZOLEDRONIC ACID
     Indication: Product used for unknown indication
     Dosage: 4 MG, Q4W
     Route: 042
     Dates: start: 20211113
  20. ACTOS [Concomitant]
     Active Substance: PIOGLITAZONE HYDROCHLORIDE
     Indication: Product used for unknown indication
     Dosage: 30 MG, QD (HALF TABLET)
     Route: 048
     Dates: start: 20211113
  21. CALCIUM CARBONATE [Concomitant]
     Active Substance: CALCIUM CARBONATE
     Indication: Product used for unknown indication
     Dosage: 1500 MG, QD
     Route: 065
     Dates: start: 20211113
  22. CALCIUM CARBONATE [Concomitant]
     Active Substance: CALCIUM CARBONATE
     Dosage: 1500 MG, QD
     Route: 065
     Dates: start: 20211208
  23. CALCIUM CARBONATE [Concomitant]
     Active Substance: CALCIUM CARBONATE
     Dosage: 1500 MG, QD
     Route: 065
     Dates: start: 20211218
  24. CALCIUM CARBONATE [Concomitant]
     Active Substance: CALCIUM CARBONATE
     Dosage: 1500 MG, QD
     Route: 065
     Dates: start: 20220108
  25. CALCIUM CARBONATE [Concomitant]
     Active Substance: CALCIUM CARBONATE
     Dosage: 1500 MG, QD
     Route: 065
     Dates: start: 20220205
  26. CALCIUM CARBONATE [Concomitant]
     Active Substance: CALCIUM CARBONATE
     Dosage: 1500 MG, QD
     Route: 065
     Dates: start: 20220303
  27. CALCIUM CARBONATE [Concomitant]
     Active Substance: CALCIUM CARBONATE
     Dosage: 1500 MG, QD
     Route: 065
     Dates: start: 20220402
  28. CALCIUM CARBONATE [Concomitant]
     Active Substance: CALCIUM CARBONATE
     Dosage: 1500 MG, QD
     Route: 065
     Dates: start: 20220528
  29. CALCIUM CARBONATE [Concomitant]
     Active Substance: CALCIUM CARBONATE
     Dosage: 1500 MG, QD
     Route: 065
     Dates: start: 20220625
  30. CALCIUM CARBONATE [Concomitant]
     Active Substance: CALCIUM CARBONATE
     Dosage: 1500 MG, QD
     Route: 065
     Dates: start: 20220723
  31. CALCIUM CARBONATE [Concomitant]
     Active Substance: CALCIUM CARBONATE
     Dosage: 1500 MG, QD
     Route: 065
     Dates: start: 20220822
  32. CALCIUM CARBONATE [Concomitant]
     Active Substance: CALCIUM CARBONATE
     Dosage: 1500 MG, QD
     Route: 065
     Dates: start: 20220919
  33. CALCIUM CARBONATE [Concomitant]
     Active Substance: CALCIUM CARBONATE
     Dosage: 1500 MG, QD
     Route: 065
     Dates: start: 20221029
  34. CALCIUM CARBONATE [Concomitant]
     Active Substance: CALCIUM CARBONATE
     Dosage: 1500 MG, QD
     Route: 065
     Dates: start: 20221203
  35. CALCIUM CARBONATE [Concomitant]
     Active Substance: CALCIUM CARBONATE
     Dosage: 1500 MG, QD
     Route: 065
     Dates: start: 20230110
  36. ERGOCALCIFEROL [Concomitant]
     Active Substance: ERGOCALCIFEROL
     Indication: Product used for unknown indication
     Dosage: 2 DOSAGE FORM, QW ( 20000 UNITS)
     Route: 048
     Dates: start: 20211113
  37. ERGOCALCIFEROL [Concomitant]
     Active Substance: ERGOCALCIFEROL
     Dosage: 2 DOSAGE FORM, QW ( 20000 UNITS)
     Route: 048
     Dates: start: 20211208
  38. ERGOCALCIFEROL [Concomitant]
     Active Substance: ERGOCALCIFEROL
     Dosage: 2 DOSAGE FORM, QW ( 20000 UNITS)
     Route: 048
     Dates: start: 20211218
  39. ERGOCALCIFEROL [Concomitant]
     Active Substance: ERGOCALCIFEROL
     Dosage: 2 DOSAGE FORM, QW ( 20000 UNITS)
     Route: 048
     Dates: start: 20220108
  40. ERGOCALCIFEROL [Concomitant]
     Active Substance: ERGOCALCIFEROL
     Dosage: 2 DOSAGE FORM, QW ( 20000 UNITS)
     Route: 048
     Dates: start: 20220205
  41. ERGOCALCIFEROL [Concomitant]
     Active Substance: ERGOCALCIFEROL
     Dosage: 2 DOSAGE FORM, QW ( 20000 UNITS)
     Route: 048
     Dates: start: 20220303
  42. ERGOCALCIFEROL [Concomitant]
     Active Substance: ERGOCALCIFEROL
     Dosage: 2 DOSAGE FORM, QW ( 20000 UNITS)
     Route: 048
     Dates: start: 20220402
  43. ERGOCALCIFEROL [Concomitant]
     Active Substance: ERGOCALCIFEROL
     Dosage: 2 DOSAGE FORM, QW ( 20000 UNITS)
     Route: 048
     Dates: start: 20220528
  44. ERGOCALCIFEROL [Concomitant]
     Active Substance: ERGOCALCIFEROL
     Dosage: 2 DOSAGE FORM, QW ( 20000 UNITS)
     Route: 048
     Dates: start: 20220625
  45. ERGOCALCIFEROL [Concomitant]
     Active Substance: ERGOCALCIFEROL
     Dosage: 2 DOSAGE FORM, QW ( 20000 UNITS)
     Route: 048
     Dates: start: 20220723
  46. ERGOCALCIFEROL [Concomitant]
     Active Substance: ERGOCALCIFEROL
     Dosage: 2 DOSAGE FORM, QW ( 20000 UNITS)
     Route: 048
     Dates: start: 20220822
  47. ERGOCALCIFEROL [Concomitant]
     Active Substance: ERGOCALCIFEROL
     Dosage: 2 DOSAGE FORM, QW ( 20000 UNITS)
     Route: 048
     Dates: start: 20220919
  48. ERGOCALCIFEROL [Concomitant]
     Active Substance: ERGOCALCIFEROL
     Dosage: 2 DOSAGE FORM, QW ( 20000 UNITS)
     Route: 048
     Dates: start: 20221029
  49. ERGOCALCIFEROL [Concomitant]
     Active Substance: ERGOCALCIFEROL
     Dosage: 2 DOSAGE FORM, QW ( 20000 UNITS)
     Route: 048
     Dates: start: 20221203
  50. ERGOCALCIFEROL [Concomitant]
     Active Substance: ERGOCALCIFEROL
     Dosage: 2 DOSAGE FORM, QW ( 20000 UNITS)
     Route: 048
     Dates: start: 20230110
  51. ZOCOR [Concomitant]
     Active Substance: SIMVASTATIN
     Indication: Product used for unknown indication
     Dosage: 20 MG, QD (1/2 TABLET)
     Route: 048
     Dates: start: 20211113
  52. ZOCOR [Concomitant]
     Active Substance: SIMVASTATIN
     Dosage: 20 MG, QD (1/2 TABLET)
     Route: 048
     Dates: start: 20211208
  53. ZOCOR [Concomitant]
     Active Substance: SIMVASTATIN
     Dosage: 20 MG, QD (1/2 TABLET)
     Route: 048
     Dates: start: 20211208
  54. ZOCOR [Concomitant]
     Active Substance: SIMVASTATIN
     Dosage: 20 MG, QD (1/2 TABLET)
     Route: 048
     Dates: start: 20211218
  55. ZOCOR [Concomitant]
     Active Substance: SIMVASTATIN
     Dosage: 20 MG, QD (1/2 TABLET)
     Route: 048
     Dates: start: 20220108
  56. ZOCOR [Concomitant]
     Active Substance: SIMVASTATIN
     Dosage: 20 MG, QD (1/2 TABLET)
     Route: 048
     Dates: start: 20220205
  57. ZOCOR [Concomitant]
     Active Substance: SIMVASTATIN
     Dosage: 20 MG, QD (1/2 TABLET)
     Route: 048
     Dates: start: 20220402
  58. ZOCOR [Concomitant]
     Active Substance: SIMVASTATIN
     Dosage: 20 MG, QD (1/2 TABLET)
     Route: 048
     Dates: start: 20220430
  59. ZOCOR [Concomitant]
     Active Substance: SIMVASTATIN
     Dosage: 20 MG, QD (1/2 TABLET)
     Route: 048
     Dates: start: 20220528
  60. ZOCOR [Concomitant]
     Active Substance: SIMVASTATIN
     Dosage: 20 MG, QD (1/2 TABLET)
     Route: 048
     Dates: start: 20220625
  61. ZOCOR [Concomitant]
     Active Substance: SIMVASTATIN
     Dosage: 20 MG, QD (1/2 TABLET)
     Route: 048
     Dates: start: 20220723
  62. ZOCOR [Concomitant]
     Active Substance: SIMVASTATIN
     Dosage: 20 MG, QD (1/2 TABLET)
     Route: 048
     Dates: start: 20220822
  63. ZOCOR [Concomitant]
     Active Substance: SIMVASTATIN
     Dosage: 20 MG, QD (1/2 TABLET)
     Route: 048
     Dates: start: 20220919
  64. ZOCOR [Concomitant]
     Active Substance: SIMVASTATIN
     Dosage: 20 MG, QD (1/2 TABLET)
     Route: 048
     Dates: start: 20220919
  65. ZOCOR [Concomitant]
     Active Substance: SIMVASTATIN
     Dosage: 20 MG, QD (1/2 TABLET)
     Route: 048
     Dates: start: 20221029
  66. ZOCOR [Concomitant]
     Active Substance: SIMVASTATIN
     Dosage: 20 MG, QD (1/2 TABLET)
     Route: 048
     Dates: start: 20221203
  67. ZOCOR [Concomitant]
     Active Substance: SIMVASTATIN
     Dosage: 20 MG, QD (1 TABLET)
     Route: 048
     Dates: start: 20230110
  68. OMEPRAZOLE [Concomitant]
     Active Substance: DONEPEZIL HYDROCHLORIDE\OMEPRAZOLE\OMEPRAZOLE MAGNESIUM
     Indication: Product used for unknown indication
     Dosage: 20 MG, QD (1 TABLET)
     Route: 048
     Dates: start: 20211113
  69. OMEPRAZOLE [Concomitant]
     Active Substance: DONEPEZIL HYDROCHLORIDE\OMEPRAZOLE\OMEPRAZOLE MAGNESIUM
     Dosage: 20 MG, QD (1 TABLET)
     Route: 048
     Dates: start: 20211208
  70. OMEPRAZOLE [Concomitant]
     Active Substance: DONEPEZIL HYDROCHLORIDE\OMEPRAZOLE\OMEPRAZOLE MAGNESIUM
     Dosage: 20 MG, QD (1 TABLET)
     Route: 048
     Dates: start: 20211218
  71. OMEPRAZOLE [Concomitant]
     Active Substance: DONEPEZIL HYDROCHLORIDE\OMEPRAZOLE\OMEPRAZOLE MAGNESIUM
     Dosage: 20 MG, QD (1 TABLET)
     Route: 048
     Dates: start: 20220402
  72. OMEPRAZOLE [Concomitant]
     Active Substance: DONEPEZIL HYDROCHLORIDE\OMEPRAZOLE\OMEPRAZOLE MAGNESIUM
     Dosage: 20 MG, QD (1 TABLET)
     Route: 048
     Dates: start: 20220430
  73. OMEPRAZOLE [Concomitant]
     Active Substance: DONEPEZIL HYDROCHLORIDE\OMEPRAZOLE\OMEPRAZOLE MAGNESIUM
     Dosage: 20 MG, QD (1 TABLET)
     Route: 048
     Dates: start: 20220528
  74. OMEPRAZOLE [Concomitant]
     Active Substance: DONEPEZIL HYDROCHLORIDE\OMEPRAZOLE\OMEPRAZOLE MAGNESIUM
     Dosage: 20 MG, QD (1 TABLET)
     Route: 048
     Dates: start: 20220625
  75. OMEPRAZOLE [Concomitant]
     Active Substance: DONEPEZIL HYDROCHLORIDE\OMEPRAZOLE\OMEPRAZOLE MAGNESIUM
     Dosage: 20 MG, QD (1 TABLET)
     Route: 048
     Dates: start: 20220723
  76. OMEPRAZOLE [Concomitant]
     Active Substance: DONEPEZIL HYDROCHLORIDE\OMEPRAZOLE\OMEPRAZOLE MAGNESIUM
     Dosage: 20 MG, QD (1 TABLET)
     Route: 048
     Dates: start: 20220822
  77. OMEPRAZOLE [Concomitant]
     Active Substance: DONEPEZIL HYDROCHLORIDE\OMEPRAZOLE\OMEPRAZOLE MAGNESIUM
     Dosage: 20 MG, QD (1 TABLET)
     Route: 048
     Dates: start: 20220919
  78. OMEPRAZOLE [Concomitant]
     Active Substance: DONEPEZIL HYDROCHLORIDE\OMEPRAZOLE\OMEPRAZOLE MAGNESIUM
     Dosage: 20 MG, QD (1 TABLET)
     Route: 048
     Dates: start: 20221029
  79. OMEPRAZOLE [Concomitant]
     Active Substance: DONEPEZIL HYDROCHLORIDE\OMEPRAZOLE\OMEPRAZOLE MAGNESIUM
     Dosage: 20 MG, QD (1 TABLET)
     Route: 048
     Dates: start: 20221203
  80. OMEPRAZOLE [Concomitant]
     Active Substance: DONEPEZIL HYDROCHLORIDE\OMEPRAZOLE\OMEPRAZOLE MAGNESIUM
     Dosage: 20 MG, QD (1 TABLET)
     Route: 048
     Dates: start: 20230110
  81. OMEPRAZOLE [Concomitant]
     Active Substance: DONEPEZIL HYDROCHLORIDE\OMEPRAZOLE\OMEPRAZOLE MAGNESIUM
     Dosage: 20 MG, BID (1 TABLET)
     Route: 048
     Dates: start: 20220108
  82. OMEPRAZOLE [Concomitant]
     Active Substance: DONEPEZIL HYDROCHLORIDE\OMEPRAZOLE\OMEPRAZOLE MAGNESIUM
     Dosage: 20 MG, BID (1 TABLET)
     Route: 048
     Dates: start: 20220205
  83. OMEPRAZOLE [Concomitant]
     Active Substance: DONEPEZIL HYDROCHLORIDE\OMEPRAZOLE\OMEPRAZOLE MAGNESIUM
     Dosage: 20 MG, BID (1 TABLET)
     Route: 048
     Dates: start: 20220303
  84. ALUM MILK [Concomitant]
     Indication: Product used for unknown indication
     Dosage: 240 ML, TID (15 CC)
     Route: 048
     Dates: start: 20211208
  85. ALUM MILK [Concomitant]
     Dosage: 240 ML, TID (15 CC)
     Route: 048
     Dates: start: 20211218
  86. ALUM MILK [Concomitant]
     Dosage: 240 ML, TID (15 CC)
     Route: 048
     Dates: start: 20220108
  87. ALUM MILK [Concomitant]
     Dosage: 240 ML, TID (15 CC)
     Route: 048
     Dates: start: 20220205
  88. ALUM MILK [Concomitant]
     Dosage: 240 ML, TID (15 CC)
     Route: 048
     Dates: start: 20220303
  89. ALUM MILK [Concomitant]
     Dosage: 240 ML, TID (15 CC)
     Route: 048
     Dates: start: 20220402
  90. ALUM MILK [Concomitant]
     Dosage: 240 ML, TID (15 CC)
     Route: 048
     Dates: start: 20220430
  91. ALUM MILK [Concomitant]
     Dosage: 240 ML, TID (15 CC)
     Route: 048
     Dates: start: 20220528
  92. ALUM MILK [Concomitant]
     Dosage: 240 ML, TID (15 CC)
     Route: 048
     Dates: start: 20220625
  93. ALUM MILK [Concomitant]
     Dosage: 240 ML, TID (15 CC)
     Route: 048
     Dates: start: 20220723
  94. ALUM MILK [Concomitant]
     Dosage: 240 ML, TID (15 CC)
     Route: 048
     Dates: start: 20220822
  95. ALUM MILK [Concomitant]
     Dosage: 240 ML, TID (15 CC)
     Route: 048
     Dates: start: 20220919
  96. ALUM MILK [Concomitant]
     Dosage: 240 ML, TID (15 CC)
     Route: 048
     Dates: start: 20221029
  97. ALUM MILK [Concomitant]
     Dosage: 240 ML, TID (15 CC)
     Route: 048
     Dates: start: 20221203
  98. ALUM MILK [Concomitant]
     Dosage: 240 ML, TID (15 CC)
     Route: 048
     Dates: start: 20230110
  99. BCO [Concomitant]
     Indication: Product used for unknown indication
     Dosage: UNK UNK, BID (1 TABLET)
     Route: 048
     Dates: start: 20211113
  100. BCO [Concomitant]
     Dosage: UNK, TID (1 TABLET)
     Route: 048
     Dates: start: 20211218
  101. BCO [Concomitant]
     Dosage: UNK, TID (1 TABLET)
     Route: 048
     Dates: start: 20220108
  102. BCO [Concomitant]
     Dosage: UNK, TID (1 TABLET)
     Route: 048
     Dates: start: 20220205
  103. BCO [Concomitant]
     Dosage: UNK, TID (1 TABLET)
     Route: 048
     Dates: start: 20220303
  104. BCO [Concomitant]
     Dosage: UNK, TID (1 TABLET)
     Route: 048
     Dates: start: 20220402
  105. BCO [Concomitant]
     Dosage: UNK, TID (1 TABLET)
     Route: 048
     Dates: start: 20220430
  106. BCO [Concomitant]
     Dosage: UNK, TID (1 TABLET)
     Route: 048
     Dates: start: 20220528
  107. BCO [Concomitant]
     Dosage: UNK, TID (1 TABLET)
     Route: 048
     Dates: start: 20220625
  108. BCO [Concomitant]
     Dosage: UNK, TID (1 TABLET)
     Route: 048
     Dates: start: 20220723
  109. BCO [Concomitant]
     Dosage: UNK, TID (1 TABLET)
     Route: 048
     Dates: start: 20220822
  110. BCO [Concomitant]
     Dosage: UNK, TID (1 TABLET)
     Route: 048
     Dates: start: 20220919
  111. BCO [Concomitant]
     Dosage: UNK, TID (1 TABLET)
     Route: 048
     Dates: start: 20221029
  112. BCO [Concomitant]
     Dosage: UNK, TID (1 TABLET)
     Route: 048
     Dates: start: 20221203
  113. BCO [Concomitant]
     Dosage: UNK, TID (1 TABLET)
     Route: 048
     Dates: start: 20230110
  114. FOLIC ACID [Concomitant]
     Active Substance: FOLIC ACID
     Indication: Product used for unknown indication
     Dosage: 5 MG, QD (1 TABLET)
     Route: 048
     Dates: start: 20211113
  115. FOLIC ACID [Concomitant]
     Active Substance: FOLIC ACID
     Dosage: 5 MG, QD (1 TABLET)
     Route: 048
     Dates: start: 20211208
  116. FOLIC ACID [Concomitant]
     Active Substance: FOLIC ACID
     Dosage: 5 MG, QD (1 TABLET)
     Route: 048
     Dates: start: 20220108
  117. FOLIC ACID [Concomitant]
     Active Substance: FOLIC ACID
     Dosage: 5 MG, QD (1 TABLET)
     Route: 048
     Dates: start: 20220205
  118. FOLIC ACID [Concomitant]
     Active Substance: FOLIC ACID
     Dosage: 5 MG, QD (1 TABLET)
     Route: 048
     Dates: start: 20220303
  119. FOLIC ACID [Concomitant]
     Active Substance: FOLIC ACID
     Dosage: 5 MG, QD (1 TABLET)
     Route: 048
     Dates: start: 20220402
  120. FOLIC ACID [Concomitant]
     Active Substance: FOLIC ACID
     Dosage: 5 MG, QD (1 TABLET)
     Route: 048
     Dates: start: 20220430
  121. FOLIC ACID [Concomitant]
     Active Substance: FOLIC ACID
     Dosage: 5 MG, QD (1 TABLET)
     Route: 048
     Dates: start: 20220528
  122. FOLIC ACID [Concomitant]
     Active Substance: FOLIC ACID
     Dosage: 5 MG, QD (1 TABLET)
     Route: 048
     Dates: start: 20220625
  123. FOLIC ACID [Concomitant]
     Active Substance: FOLIC ACID
     Dosage: 5 MG, QD (1 TABLET)
     Route: 048
     Dates: start: 20220723
  124. FOLIC ACID [Concomitant]
     Active Substance: FOLIC ACID
     Dosage: 5 MG, QD (1 TABLET)
     Route: 048
     Dates: start: 20220822
  125. FOLIC ACID [Concomitant]
     Active Substance: FOLIC ACID
     Dosage: 5 MG, QD (1 TABLET)
     Route: 048
     Dates: start: 20220919
  126. FOLIC ACID [Concomitant]
     Active Substance: FOLIC ACID
     Dosage: 5 MG, QD (1 TABLET)
     Route: 048
     Dates: start: 20221029
  127. FOLIC ACID [Concomitant]
     Active Substance: FOLIC ACID
     Dosage: 5 MG, QD (1 TABLET)
     Route: 048
     Dates: start: 20221203
  128. FOLIC ACID [Concomitant]
     Active Substance: FOLIC ACID
     Dosage: 5 MG, QD (1 TABLET)
     Route: 048
     Dates: start: 20230110
  129. ISOPTIN [Concomitant]
     Active Substance: VERAPAMIL HYDROCHLORIDE
     Indication: Product used for unknown indication
     Dosage: 240 MG, QD (1 TABLET)
     Route: 048
     Dates: start: 20211113
  130. ISOPTIN [Concomitant]
     Active Substance: VERAPAMIL HYDROCHLORIDE
     Dosage: 240 MG, QD (1 TABLET)
     Route: 048
     Dates: start: 20220205
  131. ISOPTIN [Concomitant]
     Active Substance: VERAPAMIL HYDROCHLORIDE
     Dosage: 240 MG, QD (1/2 TABLET)
     Route: 048
     Dates: start: 20220303
  132. ISOPTIN [Concomitant]
     Active Substance: VERAPAMIL HYDROCHLORIDE
     Dosage: 40 MG, BID (2 TABLET)
     Route: 048
     Dates: start: 20220402
  133. ISOPTIN [Concomitant]
     Active Substance: VERAPAMIL HYDROCHLORIDE
     Dosage: 40 MG, BID (2 TABLET)
     Route: 048
     Dates: start: 20220430
  134. ISOPTIN [Concomitant]
     Active Substance: VERAPAMIL HYDROCHLORIDE
     Dosage: 40 MG, BID (2 TABLET)
     Route: 048
     Dates: start: 20220528
  135. ISOPTIN [Concomitant]
     Active Substance: VERAPAMIL HYDROCHLORIDE
     Dosage: 40 MG, BID (2 TABLET)
     Route: 048
     Dates: start: 20220625
  136. ISOPTIN [Concomitant]
     Active Substance: VERAPAMIL HYDROCHLORIDE
     Dosage: 40 MG, BID (2 TABLET)
     Route: 048
     Dates: start: 20220723
  137. ISOPTIN [Concomitant]
     Active Substance: VERAPAMIL HYDROCHLORIDE
     Dosage: 40 MG, BID (2 TABLET)
     Route: 048
     Dates: start: 20220822
  138. ISOPTIN [Concomitant]
     Active Substance: VERAPAMIL HYDROCHLORIDE
     Dosage: 40 MG, BID (2 TABLET)
     Route: 048
     Dates: start: 20220919
  139. ISOPTIN [Concomitant]
     Active Substance: VERAPAMIL HYDROCHLORIDE
     Dosage: 40 MG, BID (2 TABLET)
     Route: 048
     Dates: start: 20221029
  140. ISOPTIN [Concomitant]
     Active Substance: VERAPAMIL HYDROCHLORIDE
     Dosage: 40 MG, BID (2 TABLET)
     Route: 048
     Dates: start: 20221203
  141. ISOPTIN [Concomitant]
     Active Substance: VERAPAMIL HYDROCHLORIDE
     Dosage: 40 MG, BID (2 TABLET)
     Route: 048
     Dates: start: 20230110
  142. TRAMADOL HCL [Concomitant]
     Active Substance: TRAMADOL HYDROCHLORIDE
     Indication: Pain
     Dosage: 50 MG, Q8H, PRN (1 TABLET)
     Route: 048
     Dates: start: 20211113
  143. TRAMADOL HCL [Concomitant]
     Active Substance: TRAMADOL HYDROCHLORIDE
     Dosage: 50 MG, Q8H, PRN (1 TABLET)
     Route: 048
     Dates: start: 20211208
  144. TRAMADOL HCL [Concomitant]
     Active Substance: TRAMADOL HYDROCHLORIDE
     Dosage: 50 MG, Q8H, PRN (1 TABLET)
     Route: 048
     Dates: start: 20211218
  145. TRAMADOL HCL [Concomitant]
     Active Substance: TRAMADOL HYDROCHLORIDE
     Dosage: 50 MG, Q8H, PRN (1 TABLET)
     Route: 048
     Dates: start: 20220108
  146. TRAMADOL HCL [Concomitant]
     Active Substance: TRAMADOL HYDROCHLORIDE
     Dosage: 50 MG, Q8H, PRN (1 TABLET)
     Route: 048
     Dates: start: 20220205
  147. TRAMADOL HCL [Concomitant]
     Active Substance: TRAMADOL HYDROCHLORIDE
     Dosage: 50 MG, Q8H, PRN (1 TABLET)
     Route: 048
     Dates: start: 20220303
  148. TRAMADOL HCL [Concomitant]
     Active Substance: TRAMADOL HYDROCHLORIDE
     Dosage: 50 MG, Q8H, PRN (1 TABLET)
     Route: 048
     Dates: start: 20220402
  149. TRAMADOL HCL [Concomitant]
     Active Substance: TRAMADOL HYDROCHLORIDE
     Dosage: 50 MG, Q8H, PRN (1 TABLET)
     Route: 048
     Dates: start: 20220430
  150. TRAMADOL HCL [Concomitant]
     Active Substance: TRAMADOL HYDROCHLORIDE
     Dosage: 50 MG, Q8H, PRN (1 TABLET)
     Route: 048
     Dates: start: 20220528
  151. TRAMADOL HCL [Concomitant]
     Active Substance: TRAMADOL HYDROCHLORIDE
     Dosage: 50 MG, Q8H, PRN (1 TABLET)
     Route: 048
     Dates: start: 20220625
  152. TRAMADOL HCL [Concomitant]
     Active Substance: TRAMADOL HYDROCHLORIDE
     Dosage: 50 MG, Q8H, PRN (1 TABLET)
     Route: 048
     Dates: start: 20220723
  153. TRAMADOL HCL [Concomitant]
     Active Substance: TRAMADOL HYDROCHLORIDE
     Dosage: 50 MG, Q8H, PRN (1 TABLET)
     Route: 048
     Dates: start: 20220822
  154. TRAMADOL HCL [Concomitant]
     Active Substance: TRAMADOL HYDROCHLORIDE
     Dosage: 50 MG, Q8H, PRN (1 TABLET)
     Route: 048
     Dates: start: 20220919
  155. TRAMADOL HCL [Concomitant]
     Active Substance: TRAMADOL HYDROCHLORIDE
     Dosage: 50 MG, Q8H, PRN (1 TABLET)
     Route: 048
     Dates: start: 20221029
  156. TRAMADOL HCL [Concomitant]
     Active Substance: TRAMADOL HYDROCHLORIDE
     Dosage: 50 MG, Q8H, PRN (1 TABLET)
     Route: 048
     Dates: start: 20221203
  157. TRAMADOL HCL [Concomitant]
     Active Substance: TRAMADOL HYDROCHLORIDE
     Dosage: 50 MG, Q8H, PRN (1 TABLET)
     Route: 048
     Dates: start: 20230110
  158. FERROUS FUMARATE [Concomitant]
     Active Substance: FERROUS FUMARATE
     Indication: Product used for unknown indication
     Dosage: 200 MG, TID (1 TABLET)
     Route: 048
     Dates: start: 20211208
  159. FERROUS FUMARATE [Concomitant]
     Active Substance: FERROUS FUMARATE
     Dosage: 200 MG, TID (1 TABLET)
     Route: 048
     Dates: start: 20211218
  160. FERROUS FUMARATE [Concomitant]
     Active Substance: FERROUS FUMARATE
     Dosage: 200 MG, TID (1 TABLET)
     Route: 048
     Dates: start: 20220108
  161. FERROUS FUMARATE [Concomitant]
     Active Substance: FERROUS FUMARATE
     Dosage: 200 MG, TID (1 TABLET)
     Route: 048
     Dates: start: 20220205
  162. FERROUS FUMARATE [Concomitant]
     Active Substance: FERROUS FUMARATE
     Dosage: 200 MG, TID (1 TABLET)
     Route: 048
     Dates: start: 20220303
  163. FERROUS FUMARATE [Concomitant]
     Active Substance: FERROUS FUMARATE
     Dosage: 200 MG, TID (1 TABLET)
     Route: 048
     Dates: start: 20220402
  164. FERROUS FUMARATE [Concomitant]
     Active Substance: FERROUS FUMARATE
     Dosage: 200 MG, TID (1 TABLET)
     Route: 048
     Dates: start: 20220430
  165. FERROUS FUMARATE [Concomitant]
     Active Substance: FERROUS FUMARATE
     Dosage: 200 MG, TID (1 TABLET)
     Route: 048
     Dates: start: 20220528
  166. FERROUS FUMARATE [Concomitant]
     Active Substance: FERROUS FUMARATE
     Dosage: 200 MG, TID (1 TABLET)
     Route: 048
     Dates: start: 20220625
  167. FERROUS FUMARATE [Concomitant]
     Active Substance: FERROUS FUMARATE
     Dosage: 200 MG, TID (1 TABLET)
     Route: 048
     Dates: start: 20220723
  168. FERROUS FUMARATE [Concomitant]
     Active Substance: FERROUS FUMARATE
     Dosage: 200 MG, TID (1 TABLET)
     Route: 048
     Dates: start: 20220822
  169. FERROUS FUMARATE [Concomitant]
     Active Substance: FERROUS FUMARATE
     Dosage: 200 MG, TID (1 TABLET)
     Route: 048
     Dates: start: 20220919
  170. FERROUS FUMARATE [Concomitant]
     Active Substance: FERROUS FUMARATE
     Dosage: 200 MG, TID (1 TABLET)
     Route: 048
     Dates: start: 20221029
  171. FERROUS FUMARATE [Concomitant]
     Active Substance: FERROUS FUMARATE
     Dosage: 200 MG, TID (1 TABLET)
     Route: 048
     Dates: start: 20221203
  172. FERROUS FUMARATE [Concomitant]
     Active Substance: FERROUS FUMARATE
     Dosage: 200 MG, TID (1 TABLET)
     Route: 048
     Dates: start: 20230110
  173. ACETYLCYSTEINE [Concomitant]
     Active Substance: ACETYLCYSTEINE
     Indication: Product used for unknown indication
     Dosage: 200 MG, TID (1 SACHET)
     Route: 048
     Dates: start: 20220528
  174. ACETYLCYSTEINE [Concomitant]
     Active Substance: ACETYLCYSTEINE
     Dosage: 200 MG, TID (1 SACHET)
     Route: 048
     Dates: start: 20220919
  175. ACETYLCYSTEINE [Concomitant]
     Active Substance: ACETYLCYSTEINE
     Dosage: 200 MG, TID (1 SACHET)
     Route: 048
     Dates: start: 20221029
  176. ACETYLCYSTEINE [Concomitant]
     Active Substance: ACETYLCYSTEINE
     Dosage: 200 MG, TID (1 SACHET)
     Route: 048
     Dates: start: 20221203
  177. ACETYLCYSTEINE [Concomitant]
     Active Substance: ACETYLCYSTEINE
     Dosage: 200 MG, TID (1 SACHET)
     Route: 048
     Dates: start: 20230110
  178. CIPROFLOXACIN [Concomitant]
     Active Substance: CIPROFLOXACIN
     Indication: Product used for unknown indication
     Dosage: 500 MG, BID
     Route: 048
     Dates: start: 20221029

REACTIONS (4)
  - Metastases to liver [Unknown]
  - Metastases to bone [Unknown]
  - Glomerular filtration rate decreased [Unknown]
  - Blood creatinine increased [Unknown]

NARRATIVE: CASE EVENT DATE: 20211208
